FAERS Safety Report 11449179 (Version 3)
Quarter: 2016Q2

REPORT INFORMATION
  Report Type: Spontaneous
  Country: FR (occurrence: FR)
  Receive Date: 20150902
  Receipt Date: 20160527
  Transmission Date: 20160815
  Serious: Yes (Hospitalization, Other)
  Sender: FDA-Public Use
  Company Number: FR-SA-2015SA132234

PATIENT
  Age: 30 Year
  Sex: Female

DRUGS (10)
  1. LEMTRADA [Suspect]
     Active Substance: ALEMTUZUMAB
     Indication: MULTIPLE SCLEROSIS
     Route: 042
     Dates: start: 20150806, end: 20150807
  2. ESOMEPRAZOLE [Suspect]
     Active Substance: ESOMEPRAZOLE
     Route: 042
     Dates: start: 20150805, end: 20150807
  3. ACICLOVIR [Suspect]
     Active Substance: ACYCLOVIR
     Route: 048
     Dates: start: 20150806, end: 20150807
  4. IMPLANON [Concomitant]
     Active Substance: ETONOGESTREL
  5. STILNOX [Suspect]
     Active Substance: ZOLPIDEM TARTRATE
     Route: 048
     Dates: start: 20150806, end: 20150807
  6. PARACETAMOL [Suspect]
     Active Substance: ACETAMINOPHEN
     Route: 048
     Dates: start: 20150806, end: 20150807
  7. RANITIDINE. [Suspect]
     Active Substance: RANITIDINE
     Route: 048
     Dates: start: 20150805, end: 20150807
  8. METHYLPREDNISOLONE. [Suspect]
     Active Substance: METHYLPREDNISOLONE
     Dosage: POWDER FOR INJECTABLE SOLUTION
     Route: 042
     Dates: start: 20150805, end: 20150808
  9. CETIRIZINE [Suspect]
     Active Substance: CETIRIZINE HYDROCHLORIDE
     Route: 048
     Dates: start: 20150806, end: 20150807
  10. POLARAMINE [Suspect]
     Active Substance: DEXCHLORPHENIRAMINE MALEATE
     Dosage: 5  MG/1  ML, INJECTABLE SOLUTION
     Route: 042
     Dates: start: 20150806, end: 20150807

REACTIONS (5)
  - Abdominal pain [Recovered/Resolved]
  - Nephrolithiasis [Unknown]
  - Hepatitis [Recovering/Resolving]
  - Lymphocyte count decreased [Unknown]
  - Headache [Recovered/Resolved]

NARRATIVE: CASE EVENT DATE: 201508
